FAERS Safety Report 6526486-4 (Version None)
Quarter: 2010Q1

REPORT INFORMATION
  Report Type: 
  Country: None (occurrence: None)
  Receive Date: 20100105
  Receipt Date: 20091231
  Transmission Date: 20100710
  Serious: Yes (Other)
  Sender: FDA-Public Use
  Company Number: CA-B.I. PHARMACEUTICALS,INC./RIDGEFIELD-2010-CN-00002CN

PATIENT
  Age: 50 Year
  Sex: Female

DRUGS (4)
  1. SPIRIVA [Suspect]
     Dosage: 1 EVERY 1 DAY(S)
     Route: 055
  2. ADVAIR DISKUS 100/50 [Suspect]
     Dosage: 2 EVERY 1 DAY(S)
     Route: 055
  3. CHAMPIX [Suspect]
     Route: 065
  4. ALBUTEROL [Suspect]
     Dosage: 4 EVERY 1 DAY(S)
     Route: 055

REACTIONS (2)
  - COMA [None]
  - DRUG INTERACTION [None]
